FAERS Safety Report 7003717-8 (Version None)
Quarter: 2010Q3

REPORT INFORMATION
  Report Type: 
  Country: None (occurrence: None)
  Receive Date: 20100920
  Receipt Date: 20090827
  Transmission Date: 20110219
  Serious: No
  Sender: FDA-Public Use
  Company Number: US-WYE-H10747509

PATIENT
  Sex: Female

DRUGS (7)
  1. PROTONIX [Suspect]
     Route: 048
  2. MORPHINE [Concomitant]
  3. TORASEMIDE [Concomitant]
  4. LYRICA [Concomitant]
  5. BONIVA [Concomitant]
  6. FENTANYL CITRATE [Concomitant]
  7. OXYCODONE HCL [Concomitant]

REACTIONS (1)
  - FALSE NEGATIVE INVESTIGATION RESULT [None]
